FAERS Safety Report 6170744-2 (Version None)
Quarter: 2009Q2

REPORT INFORMATION
  Report Type: 
  Country: None (occurrence: None)
  Receive Date: 20090427
  Receipt Date: 20090413
  Transmission Date: 20091009
  Serious: Yes (Other)
  Sender: FDA-Public Use
  Company Number: ADE# 09-072DPR

PATIENT
  Age: 69 Year
  Sex: Male

DRUGS (5)
  1. DIGOXIN [Suspect]
     Indication: TACHYCARDIA
     Dosage: ONE TABLET DAILY
  2. SOLODAL [Concomitant]
  3. GLUCOPHAGE [Concomitant]
  4. LUPRON [Concomitant]
  5. GENUVIA [Concomitant]

REACTIONS (12)
  - BACK PAIN [None]
  - BLOOD CREATININE INCREASED [None]
  - CARDIAC DISORDER [None]
  - CARDIOACTIVE DRUG LEVEL INCREASED [None]
  - CYANOSIS [None]
  - HERPES ZOSTER [None]
  - NAIL DISCOLOURATION [None]
  - NEPHROLITHIASIS [None]
  - PALLOR [None]
  - RENAL DISORDER [None]
  - STRESS [None]
  - TACHYCARDIA [None]
